FAERS Safety Report 8760203 (Version 1)
Quarter: 2012Q4

REPORT INFORMATION
  Report Type: Spontaneous
  Country: US (occurrence: None)
  Receive Date: 20120829
  Receipt Date: 20120829
  Transmission Date: 20130627
  Serious: Yes (Disabling, Other)
  Sender: FDA-Public Use
  Company Number: None

PATIENT
  Age: 29 Year
  Sex: Female
  Weight: 61.24 kg

DRUGS (2)
  1. CLARAVIS [Suspect]
     Indication: ACNE
     Dates: start: 201203, end: 20120721
  2. CLARAVIS [Suspect]
     Indication: ACNE

REACTIONS (6)
  - Skin discolouration [None]
  - Burning sensation [None]
  - Skin ulcer [None]
  - Scar [None]
  - Headache [None]
  - Ear pain [None]
